FAERS Safety Report 13888132 (Version 1)
Quarter: 2017Q3

REPORT INFORMATION
  Report Type: Report from Study
  Country: JP (occurrence: JP)
  Receive Date: 20170821
  Receipt Date: 20170821
  Transmission Date: 20171127
  Serious: Yes (Other)
  Sender: FDA-Public Use
  Company Number: JP-MYLANLABS-2017M1051397

PATIENT

DRUGS (1)
  1. BETAMETHASONE. [Suspect]
     Active Substance: BETAMETHASONE
     Indication: DYSPNOEA
     Dosage: 33.3MG FOR 10 DAYS (RECEIVED A TOTAL DOSE OF 333MG)
     Route: 065

REACTIONS (1)
  - Delirium [Unknown]
